FAERS Safety Report 7916081-4 (Version None)
Quarter: 2011Q4

REPORT INFORMATION
  Report Type: 
  Country: None (occurrence: None)
  Receive Date: 20111116
  Receipt Date: 20111104
  Transmission Date: 20120403
  Serious: Yes (Hospitalization)
  Sender: FDA-Public Use
  Company Number: JP-SP-2011-05620

PATIENT
  Sex: Male

DRUGS (3)
  1. LEVOFLOXACIN [Concomitant]
  2. IMMUCYST [Suspect]
     Indication: BLADDER CANCER RECURRENT
     Route: 043
     Dates: start: 20110523, end: 20110620
  3. LOXOPROFEN [Concomitant]

REACTIONS (4)
  - CONJUNCTIVITIS [None]
  - URETHRITIS [None]
  - ARTHRITIS [None]
  - REITER'S SYNDROME [None]
